FAERS Safety Report 4325592-2 (Version None)
Quarter: 2004Q1

REPORT INFORMATION
  Report Type: 
  Country: None (occurrence: None)
  Receive Date: 20040324
  Receipt Date: 20040308
  Transmission Date: 20041129
  Serious: Yes (Hospitalization, Other)
  Sender: FDA-Public Use
  Company Number: US_021189431

PATIENT
  Age: 45 Year
  Sex: Male
  Weight: 89 kg

DRUGS (14)
  1. PROZAC [Suspect]
     Dosage: 60 MG/1 DAY
     Dates: start: 19940101
  2. XANAX [Concomitant]
  3. KLONOPIN [Concomitant]
  4. ATIVAN [Concomitant]
  5. SERTRALINE HCL [Concomitant]
  6. NEFAZODONE [Concomitant]
  7. ANTABUSE [Concomitant]
  8. CELEXA [Concomitant]
  9. EFFEXOR [Concomitant]
  10. RELAFEN [Concomitant]
  11. AZULFIDINE [Concomitant]
  12. ZANTAC [Concomitant]
  13. EPHEDRINE [Concomitant]
  14. GUAIFENESIN [Concomitant]

REACTIONS (22)
  - ABNORMAL DREAMS [None]
  - AFFECTIVE DISORDER [None]
  - ARTHRALGIA [None]
  - BLOOD ALCOHOL INCREASED [None]
  - DRUG ABUSER [None]
  - EJACULATION FAILURE [None]
  - HALLUCINATION [None]
  - IMPRISONMENT [None]
  - INSOMNIA [None]
  - JOINT SWELLING [None]
  - LOSS OF CONSCIOUSNESS [None]
  - MANIA [None]
  - MEDICATION ERROR [None]
  - MENTAL IMPAIRMENT [None]
  - PANIC ATTACK [None]
  - PARAESTHESIA [None]
  - SEDATION [None]
  - SEXUAL DYSFUNCTION [None]
  - SOMNOLENCE [None]
  - SUICIDAL IDEATION [None]
  - THEFT [None]
  - TREMOR [None]
